FAERS Safety Report 14431750 (Version 1)
Quarter: 2018Q1

REPORT INFORMATION
  Report Type: Spontaneous
  Country: NL (occurrence: NL)
  Receive Date: 20180124
  Receipt Date: 20180124
  Transmission Date: 20180509
  Serious: Yes (Hospitalization)
  Sender: FDA-Public Use
  Company Number: PHHY2018NL009774

PATIENT
  Age: 54 Year
  Sex: Male
  Weight: 95 kg

DRUGS (1)
  1. METOPROLOL SUCCINATE SANDOZ [Suspect]
     Active Substance: METOPROLOL SUCCINATE
     Indication: HYPERTENSION
     Dosage: 100 MG, QD (1?2)
     Route: 065
     Dates: start: 20050101

REACTIONS (1)
  - Gout [Recovering/Resolving]

NARRATIVE: CASE EVENT DATE: 20171001
